FAERS Safety Report 16807351 (Version 1)
Quarter: 2019Q3

REPORT INFORMATION
  Report Type: Report from Study
  Country: US (occurrence: US)
  Receive Date: 20190913
  Receipt Date: 20190913
  Transmission Date: 20191005
  Serious: Yes (Hospitalization, Other)
  Sender: FDA-Public Use
  Company Number: US-GILEAD-2019-0428351

PATIENT
  Age: 17 Year
  Sex: Male

DRUGS (2)
  1. XOLAIR [Suspect]
     Active Substance: OMALIZUMAB
     Indication: CYSTIC FIBROSIS
     Dosage: INJECT 375 MG UNDER THE SKIN EVERY 2 WEEKS
     Route: 058
  2. AZTREONAM LYSINE [Suspect]
     Active Substance: AZTREONAM LYSINE
     Indication: CYSTIC FIBROSIS
     Dosage: INHALE 1 VIAL (75MG) VIA ALTERA NEBULIZER 3
     Route: 055

REACTIONS (1)
  - Pneumonia [Recovered/Resolved]
